FAERS Safety Report 16069165 (Version 1)
Quarter: 2019Q1

REPORT INFORMATION
  Report Type: Spontaneous
  Country: AT (occurrence: AT)
  Receive Date: 20190313
  Receipt Date: 20190313
  Transmission Date: 20190418
  Serious: Yes (Death)
  Sender: FDA-Public Use
  Company Number: AT-ALLERGAN-1909511US

PATIENT

DRUGS (4)
  1. DALBAVANCIN HCL UNK [Suspect]
     Active Substance: DALBAVANCIN HYDROCHLORIDE
     Indication: ENDOCARDITIS
     Dosage: 500 MG, SINGLE
     Route: 042
  2. BETA-LACTAM [Suspect]
     Active Substance: UNSPECIFIED INGREDIENT
     Indication: ENDOCARDITIS
     Route: 065
  3. BETA-LACTAM [Suspect]
     Active Substance: UNSPECIFIED INGREDIENT
     Indication: ABSCESS
  4. DALBAVANCIN HCL UNK [Suspect]
     Active Substance: DALBAVANCIN HYDROCHLORIDE
     Indication: ABSCESS
     Dosage: 1000 MG, SINGLE
     Route: 042

REACTIONS (3)
  - Sepsis [Fatal]
  - Off label use [Unknown]
  - Drug ineffective for unapproved indication [Unknown]
